FAERS Safety Report 11355324 (Version 7)
Quarter: 2015Q4

REPORT INFORMATION
  Report Type: Report from Study
  Country: DE (occurrence: DE)
  Receive Date: 20150807
  Receipt Date: 20151211
  Transmission Date: 20160304
  Serious: Yes (Hospitalization, Other)
  Sender: FDA-Public Use
  Company Number: DE-ROCHE-1616265

PATIENT
  Age: 46 Year
  Sex: Female
  Weight: 66 kg

DRUGS (8)
  1. PERTUZUMAB [Suspect]
     Active Substance: PERTUZUMAB
     Indication: BREAST CANCER
     Dosage: LOADING DOSE
     Route: 042
  2. TRASTUZUMAB [Suspect]
     Active Substance: TRASTUZUMAB
     Indication: BREAST CANCER
     Dosage: LOADING DOSE?DATE OF LAST DOSE PRIOR TO SAES: 22/JUL/2015
     Route: 042
  3. TRASTUZUMAB [Suspect]
     Active Substance: TRASTUZUMAB
     Dosage: MAINTAINANCE DOSE?DATE OF LAST DOSE PRIOR TO SAE : 22/JUL/2015
     Route: 042
     Dates: start: 20150429, end: 20150724
  4. PACLITAXEL. [Suspect]
     Active Substance: PACLITAXEL
     Indication: BREAST CANCER
     Dosage: DATE OF LAST DOSE PRIOR TO SAES : 15/JUL/2015
     Route: 042
     Dates: start: 20150429, end: 20150722
  5. PANTOPRAZOL [Concomitant]
     Active Substance: PANTOPRAZOLE SODIUM
     Route: 065
     Dates: start: 20150520, end: 20150730
  6. FILGRASTIM [Concomitant]
     Active Substance: FILGRASTIM
     Dosage: 30 MIU (DAY 2-5)
     Route: 065
     Dates: start: 20150716, end: 20150719
  7. PERTUZUMAB [Suspect]
     Active Substance: PERTUZUMAB
     Dosage: MAINTAINANCE DOSE?DATE OF LAST DOSE PRIOR TO SAES : 22/JUL/2015
     Route: 042
     Dates: start: 20150429, end: 20150724
  8. DOXORUBICIN HYDROCHLORIDE. [Suspect]
     Active Substance: DOXORUBICIN HYDROCHLORIDE
     Indication: BREAST CANCER
     Dosage: DATE OF LAST DOSE PRIOR TO SAES: 15/JUL/2015
     Route: 042
     Dates: start: 20150429, end: 20150722

REACTIONS (2)
  - Atypical pneumonia [Recovered/Resolved]
  - Ejection fraction decreased [Recovered/Resolved]

NARRATIVE: CASE EVENT DATE: 20150722
